FAERS Safety Report 4615899-3 (Version None)
Quarter: 2005Q1

REPORT INFORMATION
  Report Type: 
  Country: None (occurrence: None)
  Receive Date: 20050318
  Receipt Date: 20050302
  Transmission Date: 20050727
  Serious: Yes (Hospitalization)
  Sender: FDA-Public Use
  Company Number: IT-AMGEN-US061211

PATIENT
  Age: 15 Year
  Sex: Male

DRUGS (1)
  1. ENBREL [Suspect]
     Indication: JUVENILE ARTHRITIS
     Dosage: 25 MG, TWICE WEEKLY, SC
     Route: 058
     Dates: start: 20021101, end: 20030501

REACTIONS (4)
  - CROHN'S DISEASE [None]
  - DEVELOPMENTAL DELAY [None]
  - PROTEIN TOTAL DECREASED [None]
  - RED BLOOD CELL SEDIMENTATION RATE INCREASED [None]
